FAERS Safety Report 4489195-1 (Version None)
Quarter: 2004Q4

REPORT INFORMATION
  Report Type: 
  Country: None (occurrence: None)
  Receive Date: 20041029
  Receipt Date: 20041020
  Transmission Date: 20050328
  Serious: Yes (Other)
  Sender: FDA-Public Use
  Company Number: GB-JNJFOC-20041006534

PATIENT
  Age: 10 Year
  Sex: Male
  Weight: 46.5 kg

DRUGS (2)
  1. RISPERDAL [Suspect]
     Indication: SOCIAL AVOIDANT BEHAVIOUR
     Route: 049
  2. RISPERDAL [Suspect]
     Indication: AGGRESSION
     Dosage: 0.75-0-0.5
     Route: 049

REACTIONS (3)
  - BLOOD PROLACTIN INCREASED [None]
  - GYNAECOMASTIA [None]
  - PRECOCIOUS PUBERTY [None]
